FAERS Safety Report 10136632 (Version 1)
Quarter: 2014Q2

REPORT INFORMATION
  Report Type: Spontaneous
  Country: US (occurrence: None)
  Receive Date: 20140428
  Receipt Date: 20140428
  Transmission Date: 20141212
  Serious: Yes (Life-Threatening)
  Sender: FDA-Public Use
  Company Number: None

PATIENT
  Age: 56 Year
  Sex: Male

DRUGS (3)
  1. PEGASYS [Suspect]
     Dosage: INJECT, 180MCG,  SUBCUTANEOUSLY, ONCE WEEKLY
     Route: 058
  2. RIBAVIRIN 200 MG TAB [Concomitant]
  3. SOLVADI [Concomitant]

REACTIONS (1)
  - Neutropenia [None]
